FAERS Safety Report 13158690 (Version 2)
Quarter: 2017Q2

REPORT INFORMATION
  Report Type: Report from Study
  Country: JP (occurrence: JP)
  Receive Date: 20170127
  Receipt Date: 20170406
  Transmission Date: 20170830
  Serious: Yes (Other)
  Sender: FDA-Public Use
  Company Number: JP-ACTELION-A-CH2017-148780

PATIENT
  Age: 69 Year
  Sex: Female

DRUGS (7)
  1. CORTRIL [Concomitant]
     Active Substance: HYDROCORTISONE
  2. PREDONINE [Concomitant]
     Active Substance: PREDNISOLONE
  3. BONALON [Concomitant]
     Active Substance: ALENDRONATE SODIUM
  4. PROMAC [Concomitant]
     Active Substance: NITROFURANTOIN
  5. TRACLEER [Suspect]
     Active Substance: BOSENTAN
     Indication: SCLERODERMA ASSOCIATED DIGITAL ULCER
     Dosage: 62.5 MG, BID
     Route: 048
     Dates: start: 20160318, end: 20160417
  6. DORNER [Concomitant]
     Active Substance: BERAPROST SODIUM
  7. PRINK [Concomitant]

REACTIONS (3)
  - Renal impairment [Recovered/Resolved]
  - Blood creatinine increased [Recovered/Resolved]
  - Blood urea increased [Recovered/Resolved]

NARRATIVE: CASE EVENT DATE: 20160404
